FAERS Safety Report 4285388-7 (Version None)
Quarter: 2004Q1

REPORT INFORMATION
  Report Type: 
  Country: None (occurrence: None)
  Receive Date: 20040202
  Receipt Date: 20040122
  Transmission Date: 20041129
  Serious: Yes (Hospitalization)
  Sender: FDA-Public Use
  Company Number: 200310671BFR

PATIENT
  Age: 82 Year
  Sex: Female
  Weight: 66 kg

DRUGS (9)
  1. GLUCOR (ACARBOSE) [Suspect]
     Dosage: 50 MG, TID, ORAL
     Route: 048
     Dates: end: 20030624
  2. DIAMICRON (GLICLAZIDE) [Suspect]
     Dosage: 80 MG, TID, ORAL
     Route: 048
     Dates: end: 20030624
  3. SEROPRAM (CITALOPRAM HYDROBROMIDE) [Suspect]
     Dosage: 20 MG, TOTAL DAILY, ORAL
     Route: 048
  4. CLONIDINE [Suspect]
     Dosage: 0.15 MG, QD, ORAL
     Route: 048
     Dates: end: 20030625
  5. CORDARONE [Suspect]
     Dosage: 200 MG, TOTAL DAILY, ORAL
     Route: 048
     Dates: end: 20030626
  6. ALDACTAZINE [Concomitant]
  7. MOPRAL [Concomitant]
  8. TANAKAN [Concomitant]
  9. PENTOXIFYLLINE [Concomitant]

REACTIONS (8)
  - CHOLELITHIASIS [None]
  - CHOLESTASIS [None]
  - CONFUSIONAL STATE [None]
  - CREPITATIONS [None]
  - DIABETES MELLITUS INADEQUATE CONTROL [None]
  - HEPATITIS [None]
  - PANCREATIC NEOPLASM [None]
  - SINUS BRADYCARDIA [None]
